FAERS Safety Report 5262471-0 (Version None)
Quarter: 2007Q1

REPORT INFORMATION
  Report Type: 
  Country: None (occurrence: None)
  Receive Date: 20070312
  Receipt Date: 20070306
  Transmission Date: 20070707
  Serious: Yes (Death)
  Sender: FDA-Public Use
  Company Number: US-BRISTOL-MYERS SQUIBB COMPANY-13705710

PATIENT
  Age: 49 Year
  Sex: Male

DRUGS (3)
  1. CYCLOPHOSPHAMIDE [Suspect]
  2. DOXORUBICIN HCL [Suspect]
  3. VINCRISTINE [Suspect]

REACTIONS (3)
  - HAEMOPTYSIS [None]
  - MEDIASTINAL ABSCESS [None]
  - PULMONARY VASCULAR DISORDER [None]
